FAERS Safety Report 5824669-X (Version None)
Quarter: 2008Q3

REPORT INFORMATION
  Report Type: 
  Country: None (occurrence: None)
  Receive Date: 20080728
  Receipt Date: 20080724
  Transmission Date: 20090109
  Serious: Yes (Hospitalization, Other)
  Sender: FDA-Public Use
  Company Number: FR-BRISTOL-MYERS SQUIBB COMPANY-13596226

PATIENT
  Age: 20 Day
  Sex: Male

DRUGS (1)
  1. CORGARD [Suspect]
     Indication: EXTRASYSTOLES
     Route: 064

REACTIONS (10)
  - ANAEMIA [None]
  - DRUG EXPOSURE DURING PREGNANCY [None]
  - FOETAL GROWTH RETARDATION [None]
  - GENERALISED OEDEMA [None]
  - HYPOGLYCAEMIA [None]
  - NEONATAL RESPIRATORY DISTRESS SYNDROME [None]
  - OLIGOHYDRAMNIOS [None]
  - PREMATURE BABY [None]
  - PROTEIN ALBUMIN RATIO [None]
  - THROMBOCYTOPENIA NEONATAL [None]
